FAERS Safety Report 4461221-5 (Version None)
Quarter: 2004Q3

REPORT INFORMATION
  Report Type: 
  Country: None (occurrence: None)
  Receive Date: 20040928
  Receipt Date: 20040519
  Transmission Date: 20050211
  Serious: Yes (Other)
  Sender: FDA-Public Use
  Company Number: JP-JNJFOC-20040506913

PATIENT
  Sex: Female

DRUGS (3)
  1. ITRIZOLE [Suspect]
     Indication: ONYCHOMYCOSIS
     Route: 065
  2. TERBINAFINE HCL [Concomitant]
     Indication: TINEA PEDIS
     Route: 049
  3. NETICONAZOLE HYDROCHLORIDE [Concomitant]
     Indication: NAIL TINEA
     Route: 049

REACTIONS (1)
  - ERYTHEMA MULTIFORME [None]
